FAERS Safety Report 7914152-X (Version None)
Quarter: 2011Q4

REPORT INFORMATION
  Report Type: 
  Country: None (occurrence: None)
  Receive Date: 20111115
  Receipt Date: 20111110
  Transmission Date: 20120403
  Serious: Yes (Death)
  Sender: FDA-Public Use
  Company Number: JP-BAYER-2011-051959

PATIENT
  Age: 79 Year
  Sex: Male
  Weight: 60 kg

DRUGS (9)
  1. ANPLAG [Concomitant]
     Dosage: DAILY DOSE 300 MG
     Route: 048
     Dates: start: 20101209
  2. DIOVAN [Concomitant]
     Dosage: DAILY DOSE 80 MG
     Route: 048
     Dates: start: 20110416
  3. WARFARIN SODIUM [Concomitant]
     Dosage: DAILY DOSE 3 MG
     Route: 048
     Dates: start: 20101216
  4. ASPIRIN [Suspect]
     Indication: MYOCARDIAL INFARCTION
     Dosage: 100 MG, QD
     Route: 048
     Dates: start: 20110409, end: 20110422
  5. LIPITOR [Concomitant]
     Dosage: DAILY DOSE 10 MG
     Route: 048
     Dates: start: 20110409
  6. DORNER [Concomitant]
     Dosage: DAILY DOSE 60 ?G
     Route: 048
     Dates: start: 20110106
  7. LANSOPRAZOLE [Concomitant]
     Dosage: DAILY DOSE 15 MG
     Route: 048
     Dates: start: 20110106
  8. PLAVIX [Suspect]
     Dosage: DAILY DOSE 75 MG
     Route: 048
     Dates: start: 20110409
  9. ENALAPRIL MALEATE [Concomitant]
     Dosage: DAILY DOSE 5 MG
     Route: 048
     Dates: start: 20110409

REACTIONS (1)
  - THROMBOSIS IN DEVICE [None]
